FAERS Safety Report 10485650 (Version 1)
Quarter: 2014Q4

REPORT INFORMATION
  Report Type: Report from Study
  Country: US (occurrence: US)
  Receive Date: 20141001
  Receipt Date: 20141001
  Transmission Date: 20150528
  Serious: Yes (Other)
  Sender: FDA-Public Use
  Company Number: US-ROCHE-1468085

PATIENT
  Age: 77 Year
  Sex: Male
  Weight: 91.71 kg

DRUGS (11)
  1. NUTROPIN AQ [Suspect]
     Active Substance: SOMATROPIN
     Indication: HYPOPITUITARISM
     Route: 058
     Dates: start: 20050204
  2. BUSPIRONE [Concomitant]
     Active Substance: BUSPIRONE HYDROCHLORIDE
     Route: 065
  3. VITAMIN B12 [Concomitant]
     Active Substance: CYANOCOBALAMIN
  4. NUTROPIN AQ [Suspect]
     Active Substance: SOMATROPIN
     Route: 058
  5. CORTEF [Concomitant]
     Active Substance: HYDROCORTISONE
     Dosage: IN AM
     Route: 048
  6. AMBIEN [Concomitant]
     Active Substance: ZOLPIDEM TARTRATE
     Route: 065
  7. SYNTHROID [Concomitant]
     Active Substance: LEVOTHYROXINE SODIUM
     Route: 048
  8. SYNTHROID [Concomitant]
     Active Substance: LEVOTHYROXINE SODIUM
     Route: 048
  9. NUTROPIN AQ [Suspect]
     Active Substance: SOMATROPIN
     Dosage: DAILY7/WEEK
     Route: 058
  10. CORTEF [Concomitant]
     Active Substance: HYDROCORTISONE
     Dosage: IN PM
     Route: 048
  11. TESTOSTERONE. [Concomitant]
     Active Substance: TESTOSTERONE
     Route: 048

REACTIONS (6)
  - Influenza [Not Recovered/Not Resolved]
  - Fatigue [Unknown]
  - Fatigue [Unknown]
  - Hyporeflexia [Unknown]
  - Asthenia [Unknown]
  - Stress [Unknown]

NARRATIVE: CASE EVENT DATE: 201309
